FAERS Safety Report 6726721-3 (Version None)
Quarter: 2010Q2

REPORT INFORMATION
  Report Type: 
  Country: None (occurrence: None)
  Receive Date: 20100514
  Receipt Date: 20100504
  Transmission Date: 20101027
  Serious: Yes (Hospitalization)
  Sender: FDA-Public Use
  Company Number: BR-GENENTECH-301538

PATIENT
  Sex: Female
  Weight: 87 kg

DRUGS (17)
  1. RITUXIMAB [Suspect]
     Indication: RHEUMATOID ARTHRITIS
     Dosage: UNK
     Route: 042
     Dates: start: 20090313
  2. RITUXIMAB [Suspect]
     Indication: SYSTEMIC LUPUS ERYTHEMATOSUS
  3. PRESSAT [Concomitant]
     Indication: HYPERTENSION
     Dosage: 5 MG, UNK
  4. ARADOIS [Concomitant]
     Indication: HYPERTENSION
     Dosage: 50 MG, UNK
  5. PREDNISONE [Concomitant]
     Indication: SYSTEMIC LUPUS ERYTHEMATOSUS
     Dosage: 40 MG, UNK
  6. PURAN T4 [Concomitant]
     Indication: DRUG USE FOR UNKNOWN INDICATION
     Dosage: 175 A?G, UNK
  7. SELOKEN [Concomitant]
     Indication: NEUROPATHY PERIPHERAL
     Dosage: 100 MG, UNK
  8. INSULIN [Concomitant]
     Indication: BLOOD GLUCOSE INCREASED
     Dosage: UNK
  9. CHLOROQUINE PHOSPHATE [Concomitant]
     Indication: DRUG USE FOR UNKNOWN INDICATION
     Dosage: 200 MG, UNK
  10. OMEPRAZOLE [Concomitant]
     Indication: GASTRIC DISORDER
     Dosage: 150 MG, UNK
  11. NPH INSULIN [Concomitant]
     Indication: DRUG USE FOR UNKNOWN INDICATION
     Dosage: 50 IU, UNK
  12. GABAPENTIN [Concomitant]
     Indication: DRUG USE FOR UNKNOWN INDICATION
     Dosage: 600 MG, UNK
  13. SYNTHROID [Concomitant]
     Indication: THYROID DISORDER
     Dosage: 175 A?G, UNK
  14. RANITIDINE [Concomitant]
     Indication: DRUG USE FOR UNKNOWN INDICATION
     Dosage: UNK
  15. NEURONTIN [Concomitant]
     Indication: DIABETIC NEUROPATHY
     Dosage: 1600 MG, UNK
  16. PANTOPRAZOLE [Concomitant]
     Indication: DRUG USE FOR UNKNOWN INDICATION
     Dosage: UNK
  17. FLUOXETINE [Concomitant]
     Indication: DRUG USE FOR UNKNOWN INDICATION
     Dosage: UNK

REACTIONS (20)
  - ABASIA [None]
  - ALOPECIA [None]
  - ARRHYTHMIA [None]
  - BLINDNESS [None]
  - BONE PAIN [None]
  - DISORIENTATION [None]
  - DIZZINESS [None]
  - DYSPNOEA [None]
  - ERYTHEMA [None]
  - HEADACHE [None]
  - IMMUNODEFICIENCY [None]
  - LUNG INFECTION [None]
  - MALAISE [None]
  - NAUSEA [None]
  - NERVOUSNESS [None]
  - PAIN [None]
  - PAIN IN EXTREMITY [None]
  - PYREXIA [None]
  - RASH MACULAR [None]
  - VOMITING [None]
